FAERS Safety Report 24864286 (Version 2)
Quarter: 2025Q1

REPORT INFORMATION
  Report Type: Spontaneous
  Country: IR (occurrence: IR)
  Receive Date: 20250120
  Receipt Date: 20250122
  Transmission Date: 20250408
  Serious: Yes (Congenital Anomaly, Other)
  Sender: OXFORD PHARMACEUTICALS, LLC
  Company Number: IR-Oxford Pharmaceuticals, LLC-2169384

PATIENT

DRUGS (1)
  1. SERTRALINE HYDROCHLORIDE [Suspect]
     Active Substance: SERTRALINE HYDROCHLORIDE
     Indication: Product used for unknown indication

REACTIONS (2)
  - Ductus arteriosus premature closure [Recovered/Resolved]
  - Foetal exposure during pregnancy [Unknown]
